FAERS Safety Report 6819307-3 (Version None)
Quarter: 2010Q3

REPORT INFORMATION
  Report Type: 
  Country: None (occurrence: None)
  Receive Date: 20100707
  Receipt Date: 20100630
  Transmission Date: 20110219
  Serious: Yes (Death)
  Sender: FDA-Public Use
  Company Number: JP-BAYER-201012860BYL

PATIENT
  Age: 64 Year
  Sex: Male
  Weight: 68 kg

DRUGS (19)
  1. NEXAVAR [Suspect]
     Indication: HEPATIC NEOPLASM MALIGNANT
     Dosage: TOTAL DAILY DOSE: 800 MG  UNIT DOSE: 200 MG
     Route: 048
     Dates: start: 20100506, end: 20100526
  2. NORVASC [Concomitant]
     Dosage: UNIT DOSE: 5 MG
     Route: 048
     Dates: start: 20100415, end: 20100604
  3. LOXOPROFEN [Concomitant]
     Dosage: UNIT DOSE: 60 MG
     Route: 048
     Dates: start: 20100415, end: 20100604
  4. GASTER [Concomitant]
     Indication: GASTRITIS PROPHYLAXIS
     Dosage: UNIT DOSE: 20 MG
     Route: 048
     Dates: start: 20100415, end: 20100604
  5. BLOPRESS [Concomitant]
     Dosage: UNIT DOSE: 4 MG
     Route: 048
     Dates: start: 20100419, end: 20100604
  6. FLUITRAN [Concomitant]
     Dosage: UNIT DOSE: 2 MG
     Route: 048
     Dates: start: 20100419, end: 20100604
  7. URSO 250 [Concomitant]
     Dosage: UNIT DOSE: 50 MG
     Route: 048
     Dates: start: 20100422, end: 20100604
  8. KERATINAMIN [Concomitant]
     Indication: PROPHYLAXIS
     Route: 061
     Dates: start: 20100506, end: 20100526
  9. FLIVAS OD [Concomitant]
     Dosage: UNIT DOSE: 25 MG
     Route: 048
     Dates: start: 20100507, end: 20100604
  10. OXYCONTIN [Concomitant]
     Dosage: UNIT DOSE: 5 MG
     Route: 048
     Dates: start: 20100520, end: 20100523
  11. OXYCONTIN [Concomitant]
     Dosage: UNIT DOSE: 5 MG
     Route: 048
     Dates: start: 20100511, end: 20100512
  12. OXYCONTIN [Concomitant]
     Dosage: UNIT DOSE: 5 MG
     Route: 048
     Dates: start: 20100524, end: 20100604
  13. OXINORM [Concomitant]
     Dosage: UNIT DOSE: 0.5 %
     Route: 048
     Dates: start: 20100511, end: 20100602
  14. NOVAMIN [Concomitant]
     Dosage: UNIT DOSE: 5 MG
     Route: 048
     Dates: start: 20100512, end: 20100513
  15. EVAMYL [Concomitant]
     Indication: PROPHYLAXIS
     Dosage: UNIT DOSE: 1 MG
     Route: 048
     Dates: start: 20100512, end: 20100501
  16. MAGLAX [Concomitant]
     Indication: CONSTIPATION PROPHYLAXIS
     Dosage: UNIT DOSE: 330 MG
     Route: 048
     Dates: start: 20100511, end: 20100604
  17. NEO-MINOPHAGEN C [Concomitant]
     Route: 042
     Dates: start: 20100514, end: 20100514
  18. NEO-MINOPHAGEN C [Concomitant]
     Route: 042
     Dates: start: 20100517, end: 20100517
  19. LAXOBERON [Concomitant]
     Indication: CONSTIPATION PROPHYLAXIS
     Dosage: UNIT DOSE: 2.5 MG
     Route: 048
     Dates: start: 20100510, end: 20100601

REACTIONS (6)
  - ALCOHOL USE [None]
  - HEPATIC ENCEPHALOPATHY [None]
  - HEPATIC FAILURE [None]
  - HEPATIC NEOPLASM MALIGNANT [None]
  - MALIGNANT NEOPLASM PROGRESSION [None]
  - SCROTAL ULCER [None]
